FAERS Safety Report 11641127 (Version 1)
Quarter: 2015Q4

REPORT INFORMATION
  Report Type: Spontaneous
  Country: US (occurrence: US)
  Receive Date: 20151019
  Receipt Date: 20151019
  Transmission Date: 20160304
  Serious: No
  Sender: FDA-Public Use
  Company Number: US-ENDO PHARMACEUTICALS INC.-2015-000699

PATIENT
  Age: 67 Year
  Sex: Female
  Weight: 65.83 kg

DRUGS (2)
  1. GABAPENTIN. [Suspect]
     Active Substance: GABAPENTIN
     Indication: PAIN IN EXTREMITY
     Route: 048
     Dates: start: 201405
  2. AMITRIPTYLINE HCL [Suspect]
     Active Substance: AMITRIPTYLINE
     Indication: PRODUCT USED FOR UNKNOWN INDICATION
     Route: 065
     Dates: start: 201405, end: 201410

REACTIONS (4)
  - Erythema [Not Recovered/Not Resolved]
  - Cough [Unknown]
  - Dry mouth [Unknown]
  - Throat irritation [Unknown]

NARRATIVE: CASE EVENT DATE: 2014
